FAERS Safety Report 22087563 (Version 1)
Quarter: 2023Q1

REPORT INFORMATION
  Report Type: Spontaneous
  Country: FR (occurrence: FR)
  Receive Date: 20230313
  Receipt Date: 20230313
  Transmission Date: 20230418
  Serious: Yes (Hospitalization, Other)
  Sender: FDA-Public Use
  Company Number: FR-CELGENE-FRA-20210802901

PATIENT
  Age: 60 Year
  Sex: Male

DRUGS (36)
  1. ABRAXANE [Suspect]
     Active Substance: PACLITAXEL
     Indication: Ductal adenocarcinoma of pancreas
     Dosage: FREQUENCY TEXT: NOT PROVIDED
     Route: 042
     Dates: start: 20200122, end: 20200129
  2. ABRAXANE [Suspect]
     Active Substance: PACLITAXEL
     Dosage: FREQUENCY TEXT: NOT PROVIDED
     Route: 042
     Dates: start: 20200119
  3. GEMCITABINE [Suspect]
     Active Substance: GEMCITABINE
     Indication: Ductal adenocarcinoma of pancreas
     Dosage: FREQUENCY TEXT: NOT PROVIDED
     Route: 042
     Dates: start: 20200122, end: 20200129
  4. GEMCITABINE [Suspect]
     Active Substance: GEMCITABINE
     Dosage: FREQUENCY TEXT: NOT PROVIDED
     Route: 042
  5. GEMCITABINE [Suspect]
     Active Substance: GEMCITABINE
     Dosage: FREQUENCY TEXT: NOT PROVIDED
     Route: 042
     Dates: start: 20200219
  6. ASPARAGINASE [Suspect]
     Active Substance: ASPARAGINASE
     Indication: Ductal adenocarcinoma of pancreas
     Dosage: FREQUENCY TEXT: NOT PROVIDED
     Route: 042
     Dates: start: 20200122, end: 20200122
  7. CREON [Concomitant]
     Active Substance: PANCRELIPASE AMYLASE\PANCRELIPASE LIPASE\PANCRELIPASE PROTEASE
     Indication: Pancreatic failure
     Dosage: 150000 IU (INTERNATIONAL UNIT)
     Dates: start: 20191105, end: 20200204
  8. CREON [Concomitant]
     Active Substance: PANCRELIPASE AMYLASE\PANCRELIPASE LIPASE\PANCRELIPASE PROTEASE
     Dosage: 9 DOSAGE FORMS
     Route: 048
  9. CREON [Concomitant]
     Active Substance: PANCRELIPASE AMYLASE\PANCRELIPASE LIPASE\PANCRELIPASE PROTEASE
     Dosage: 25000 IU, TID (2-2-2)
     Dates: start: 20191105, end: 20200204
  10. DOLIPRANE [Concomitant]
     Active Substance: ACETAMINOPHEN
     Indication: Pain
     Dosage: FREQUENCY TEXT: NOT PROVIDED?4 MILLIGRAM
     Dates: start: 20200114
  11. SODIUM BICARBONATE [Concomitant]
     Active Substance: SODIUM BICARBONATE
     Indication: Gastrooesophageal reflux disease
     Dosage: 3-6
     Dates: start: 20200114
  12. PHLOROGLUCINOL [Concomitant]
     Active Substance: PHLOROGLUCINOL
     Indication: Pain
     Dosage: 240 MILLIGRAM
     Route: 048
     Dates: start: 20200114
  13. PHLOROGLUCINOL [Concomitant]
     Active Substance: PHLOROGLUCINOL
     Dosage: 480 MILLIGRAM
     Route: 048
     Dates: start: 20200204
  14. SPAGULAX [Concomitant]
     Active Substance: HERBALS\PLANTAGO OVATA SEED
     Indication: Product used for unknown indication
     Dates: start: 20191022, end: 20200204
  15. POLYETHYLENE GLYCOLS [Concomitant]
     Active Substance: POLYETHYLENE GLYCOLS
     Indication: Product used for unknown indication
     Dosage: 22 DOSAGE FORMS
     Dates: start: 20191022, end: 20200204
  16. BEPANTHEN [Concomitant]
     Indication: Product used for unknown indication
     Dosage: 1 DOSAGE FORMS
     Dates: start: 20191022, end: 20200204
  17. IMODIUM [Concomitant]
     Active Substance: LOPERAMIDE HYDROCHLORIDE
     Indication: Product used for unknown indication
     Dosage: FREQUENCY TEXT: IF NEEDED
     Route: 048
     Dates: start: 20200114, end: 20200204
  18. PRIMPERAN [Concomitant]
     Active Substance: METOCLOPRAMIDE HYDROCHLORIDE
     Indication: Product used for unknown indication
     Dosage: 30 MILLIGRAM
     Dates: start: 20200114, end: 20200204
  19. EMLA [Concomitant]
     Active Substance: LIDOCAINE\PRILOCAINE
     Indication: Product used for unknown indication
     Dosage: FREQUENCY TEXT: NOT PEOVIDED
     Dates: start: 20200114, end: 20200204
  20. EMEND [Concomitant]
     Active Substance: APREPITANT
     Indication: Product used for unknown indication
     Dosage: FREQUENCY TEXT: NOT PEOVIDED
     Dates: start: 20200114, end: 20200204
  21. EMEND [Concomitant]
     Active Substance: APREPITANT
     Dosage: 125 MG (ONE DAY) (80 MG DAY 2 AND 3)
     Dates: start: 20191122, end: 20200204
  22. SODIUM ALGINATE\SODIUM BICARBONATE [Concomitant]
     Active Substance: SODIUM ALGINATE\SODIUM BICARBONATE
     Indication: Gastrooesophageal reflux disease
     Dosage: FREQUENCY TEXT: IF NEEDED?UNK, QD (AS NEEDED)
     Dates: start: 20200204
  23. SODIUM ALGINATE\SODIUM BICARBONATE [Concomitant]
     Active Substance: SODIUM ALGINATE\SODIUM BICARBONATE
     Dosage: 10 ML, QD (AS NEEDED)
     Dates: start: 20200204
  24. SODIUM ALGINATE\SODIUM BICARBONATE [Concomitant]
     Active Substance: SODIUM ALGINATE\SODIUM BICARBONATE
     Dosage: 1 DOSAGE FORM, QD
  25. ACUPAN [Concomitant]
     Active Substance: NEFOPAM HYDROCHLORIDE
     Indication: Pain
     Dosage: FREQUENCY TEXT: AS NEEDED?80 MILLIGRAM
     Dates: start: 20200204
  26. DAFALGAN [Concomitant]
     Active Substance: ACETAMINOPHEN
     Indication: Pain
     Dosage: FREQUENCY TEXT: AS NEEDED?400 MILLIGRAM
  27. DAFALGAN [Concomitant]
     Active Substance: ACETAMINOPHEN
     Dosage: 1000 MG, QID
     Dates: start: 20200204
  28. SODIUM CHLORIDE [Concomitant]
     Active Substance: SODIUM CHLORIDE
     Indication: Gastrooesophageal reflux disease
     Dosage: FREQUENCY TEXT: NOT PROVIDED?1000 ML, QD
     Route: 042
     Dates: start: 20200204
  29. LANSOPRAZOLE [Concomitant]
     Active Substance: LANSOPRAZOLE
     Indication: Gastrooesophageal reflux disease
     Dosage: FREQUENCY TEXT: NOT PROVIDED
     Dates: start: 20200204
  30. LANSOPRAZOLE [Concomitant]
     Active Substance: LANSOPRAZOLE
     Dosage: 30 MG, QD
     Dates: start: 20200207
  31. VASELINE PURE [Concomitant]
     Active Substance: PETROLATUM
     Indication: Anal fissure
     Dosage: FREQUENCY TEXT: NOT PROVIDED
     Dates: start: 20200204
  32. PANTHENOL [Concomitant]
     Active Substance: PANTHENOL
     Indication: Product used for unknown indication
     Dosage: 1 DOSAGE FORMS
     Dates: start: 20191022, end: 20200204
  33. OLIMEL [Concomitant]
     Active Substance: AMINO ACIDS\DEXTROSE\SOYBEAN OIL
     Indication: Product used for unknown indication
     Dosage: FREQUENCY TEXT: NOT PROVIDED
     Dates: start: 20200206
  34. IRON\MINERALS\POTASSIUM IOD\SODIUM FLUORIDE\SODIUM MOLYBDATE\SODIUM SE [Concomitant]
     Active Substance: IRON\MINERALS\POTASSIUM IOD\SODIUM FLUORIDE\SODIUM MOLYBDATE\SODIUM SELENITE\ZINC
     Indication: Product used for unknown indication
     Dosage: FREQUENCY TEXT: NOT PROVIDED
     Dates: start: 20200206
  35. LOVENOX [Concomitant]
     Active Substance: ENOXAPARIN SODIUM
     Indication: Thrombosis prophylaxis
     Dosage: 0.4 ML, QD
     Dates: start: 20200211
  36. VENOFER [Concomitant]
     Active Substance: IRON SUCROSE
     Indication: Iron deficiency
     Dates: start: 20200212

REACTIONS (2)
  - Bicytopenia [Recovered/Resolved]
  - Stomatitis [Recovered/Resolved]

NARRATIVE: CASE EVENT DATE: 20200129
